FAERS Safety Report 8928740 (Version 2)
Quarter: 2012Q4

REPORT INFORMATION
  Report Type: 
  Country: US (occurrence: US)
  Receive Date: 20121128
  Receipt Date: 20121213
  Transmission Date: 20130627
  Serious: Yes (Other)
  Sender: FDA-Public Use
  Company Number: US-PFIZER INC-2012295514

PATIENT
  Age: 51 Year
  Sex: Male
  Weight: 102 kg

DRUGS (7)
  1. XALKORI [Suspect]
     Indication: LUNG CANCER
     Dosage: 250 mg, 2x/day
     Route: 048
  2. TRAZODONE [Concomitant]
     Dosage: UNK
  3. WELLBUTRIN SR [Concomitant]
     Dosage: UNK
  4. PROZAC [Concomitant]
     Dosage: UNK
  5. ZANTAC [Concomitant]
     Dosage: UNK
  6. MULTIVIT [Concomitant]
     Dosage: UNK
  7. ENOXAPARIN [Concomitant]
     Indication: CLOT BLOOD

REACTIONS (2)
  - Pulmonary thrombosis [Unknown]
  - Thrombosis [Unknown]
